FAERS Safety Report 9930443 (Version 1)
Quarter: 2014Q1

REPORT INFORMATION
  Report Type: Spontaneous
  Country: US (occurrence: US)
  Receive Date: 20140227
  Receipt Date: 20140227
  Transmission Date: 20141002
  Serious: No
  Sender: FDA-Public Use
  Company Number: US-AMGEN-USASP2013085340

PATIENT
  Age: 57 Year
  Sex: Female
  Weight: 61.22 kg

DRUGS (7)
  1. ENBREL [Suspect]
     Indication: PRODUCT USED FOR UNKNOWN INDICATION
     Dosage: 50 MG, QWK
     Route: 058
  2. CO ENZYME Q10                      /00517201/ [Concomitant]
     Dosage: 50 MG, UNK
  3. SYNTHROID [Concomitant]
     Dosage: 112 MUG, UNK
  4. FOLIC ACID [Concomitant]
     Dosage: 5 MG, UNK
  5. VITAMIN D3 [Concomitant]
     Dosage: 400 UNIT, UNK
  6. PRILOSEC                           /00661201/ [Concomitant]
     Dosage: 20 MG, UNK
  7. METHOTREXATE [Concomitant]
     Dosage: 2.5 MG, UNK

REACTIONS (1)
  - Drug effect decreased [Unknown]
